FAERS Safety Report 9492107 (Version 1)
Quarter: 2013Q3

REPORT INFORMATION
  Report Type: Spontaneous
  Country: CA (occurrence: CA)
  Receive Date: 20130830
  Receipt Date: 20130830
  Transmission Date: 20140515
  Serious: Yes (Other)
  Sender: FDA-Public Use
  Company Number: CA-JNJFOC-20130812911

PATIENT
  Sex: Male

DRUGS (5)
  1. TYLENOL CHILDRENS SUSPENSION [Suspect]
     Route: 048
  2. TYLENOL CHILDRENS SUSPENSION [Suspect]
     Indication: HEADACHE
     Route: 048
  3. TEGRETOL [Concomitant]
     Indication: CONVULSION PROPHYLAXIS
     Route: 065
  4. NITRAZEPAM [Concomitant]
     Indication: CONVULSION PROPHYLAXIS
     Route: 065
  5. CLONAZEPAM [Concomitant]
     Indication: CONVULSION PROPHYLAXIS
     Route: 065

REACTIONS (1)
  - Convulsion [Recovered/Resolved]
